FAERS Safety Report 23493806 (Version 2)
Quarter: 2024Q1

REPORT INFORMATION
  Report Type: Report from Study
  Country: NL (occurrence: NL)
  Receive Date: 20240207
  Receipt Date: 20240209
  Transmission Date: 20240410
  Serious: Yes (Hospitalization, Other)
  Sender: FDA-Public Use
  Company Number: NL-BAXTER-2024BAX011968

PATIENT
  Age: 79 Year
  Sex: Male
  Weight: 90.9 kg

DRUGS (27)
  1. CYCLOPHOSPHAMIDE [Suspect]
     Active Substance: CYCLOPHOSPHAMIDE
     Indication: Diffuse large B-cell lymphoma
     Dosage: 1605 MG, EVERY 3 WEEKS, ONGOING
     Route: 042
     Dates: start: 20240104
  2. EPCORITAMAB [Suspect]
     Active Substance: EPCORITAMAB
     Indication: Diffuse large B-cell lymphoma
     Dosage: 0.16 MG, PRIMING DOSE; C1, D1, TOTAL
     Route: 058
     Dates: start: 20240104, end: 20240104
  3. EPCORITAMAB [Suspect]
     Active Substance: EPCORITAMAB
     Dosage: 0.8 MG, INTERMEDIATE DOSE; C1, D8, TOTAL
     Route: 065
     Dates: start: 20240111, end: 20240111
  4. EPCORITAMAB [Suspect]
     Active Substance: EPCORITAMAB
     Dosage: 48 MG, FULL DOSE, C1, D15 + 22, EVERY 1 WEEKS, ONGOING
     Route: 058
     Dates: start: 20240118
  5. VINCRISTINE [Suspect]
     Active Substance: VINCRISTINE
     Indication: Diffuse large B-cell lymphoma
     Dosage: 2 MG, EVERY 3 WEEKS, ONGOING
     Route: 042
     Dates: start: 20240104
  6. RITUXIMAB [Suspect]
     Active Substance: RITUXIMAB
     Indication: Diffuse large B-cell lymphoma
     Dosage: 803 MG, EVERY 3 WEEKS, ONGOING
     Route: 042
     Dates: start: 20240103
  7. DOXORUBICIN [Suspect]
     Active Substance: DOXORUBICIN
     Indication: Diffuse large B-cell lymphoma
     Dosage: 107 MG, EVERY 3 WEEKS, ONGOING
     Route: 042
     Dates: start: 20240104
  8. PREDNISONE [Suspect]
     Active Substance: PREDNISONE
     Indication: Diffuse large B-cell lymphoma
     Dosage: 100 MG, DAILY, C1-6, DAY 1-5, EVERY 1 DAYS, ONGOING
     Route: 048
     Dates: start: 20240103
  9. ASPIRIN [Concomitant]
     Active Substance: ASPIRIN
     Indication: Ischaemic heart disease prophylaxis
     Dosage: 80 MG, EVERY 1 DAYS
     Route: 065
     Dates: start: 20160323
  10. SIMVASTATIN [Concomitant]
     Active Substance: SIMVASTATIN
     Indication: Ischaemic heart disease prophylaxis
     Dosage: 10 MG, EVERY 1 DAYS
     Route: 065
     Dates: start: 20160325
  11. DYMISTA [Concomitant]
     Active Substance: AZELASTINE HYDROCHLORIDE\FLUTICASONE PROPIONATE
     Indication: Rhinitis
     Dosage: 137/50 UG/DOSE, EVERY 12 HOURS
     Route: 065
  12. DYMISTA [Concomitant]
     Active Substance: AZELASTINE HYDROCHLORIDE\FLUTICASONE PROPIONATE
     Indication: Obstructive sleep apnoea syndrome
  13. CARBOMER [Concomitant]
     Active Substance: CARBOMER
     Indication: Eye disorder prophylaxis
     Dosage: 0.002 G, EVERY 12 HOURS
     Route: 065
     Dates: start: 20230407
  14. GRANISETRON [Concomitant]
     Active Substance: GRANISETRON
     Indication: Prophylaxis of nausea and vomiting
     Dosage: 2 MG FREQUENCY: INTERMITTENT
     Route: 065
     Dates: start: 20240102
  15. METOCLOPRAMIDE [Concomitant]
     Active Substance: METOCLOPRAMIDE
     Indication: Prophylaxis of nausea and vomiting
     Dosage: 10 MG FREQUENCY, FREQUENCY: INTERMITTENT
     Route: 065
     Dates: start: 20240102
  16. MOVICOLON [Concomitant]
     Active Substance: POLYETHYLENE GLYCOL 3350\POTASSIUM CHLORIDE\SODIUM BICARBONATE\SODIUM CHLORIDE
     Indication: Constipation prophylaxis
     Dosage: 1 SACHET, FREQUENCY: INTERMITTENT
     Route: 065
     Dates: start: 20240102
  17. LEVOCETIRIZINE [Concomitant]
     Active Substance: LEVOCETIRIZINE
     Indication: Immune disorder prophylaxis
     Dosage: 5 MG FREQUENCY: INTERMITTENT
     Route: 065
     Dates: start: 20240103
  18. OMEPRAZOLE [Concomitant]
     Active Substance: OMEPRAZOLE
     Indication: Gastrointestinal disorder prophylaxis
     Dosage: 40 MG, EVERY 1 DAYS
     Route: 065
     Dates: start: 20231229
  19. VALACYCLOVIR HYDROCHLORIDE [Concomitant]
     Active Substance: VALACYCLOVIR HYDROCHLORIDE
     Indication: Infection prophylaxis
     Dosage: 500 MG, EVERY 12 HOURS
     Route: 065
     Dates: start: 20240102
  20. SULFAMETHOXAZOLE\TRIMETHOPRIM [Concomitant]
     Active Substance: SULFAMETHOXAZOLE\TRIMETHOPRIM
     Indication: Infection prophylaxis
     Dosage: 480 MG, EVERY 1 DAYS
     Route: 065
     Dates: start: 20240102
  21. RASBURICASE [Concomitant]
     Active Substance: RASBURICASE
     Indication: Tumour lysis syndrome
     Dosage: 3 MG, TOTAL
     Route: 065
     Dates: start: 20240104, end: 20240104
  22. ACETAMINOPHEN [Concomitant]
     Active Substance: ACETAMINOPHEN
     Indication: Immune disorder prophylaxis
     Dosage: 1000 MG FREQUENCY: INTERMITTENT
     Route: 065
     Dates: start: 20240103
  23. PEGFILGRASTIM [Concomitant]
     Active Substance: PEGFILGRASTIM
     Indication: Prophylaxis
     Dosage: 6 MG FREQUENCY: INTERMITTENT
     Route: 065
     Dates: start: 20240104
  24. TEMAZEPAM [Concomitant]
     Active Substance: TEMAZEPAM
     Indication: Sedative therapy
     Dosage: 10 MG FREQUENCY: INTERMITTENT
     Route: 065
     Dates: start: 20240108
  25. DEXAMETHASONE [Concomitant]
     Active Substance: DEXAMETHASONE
     Indication: Prophylaxis
     Dosage: 20 MG, EVERY 1 DAY
     Route: 065
     Dates: start: 20231229, end: 20240102
  26. DEXAMETHASONE [Concomitant]
     Active Substance: DEXAMETHASONE
     Indication: Prophylaxis
     Dosage: 15 MG, EVERY 1 DAY
     Route: 065
     Dates: start: 20240111, end: 20240115
  27. DEXAMETHASONE [Concomitant]
     Active Substance: DEXAMETHASONE
     Indication: Prophylaxis

REACTIONS (2)
  - Cytokine release syndrome [Recovered/Resolved]
  - Renal failure [Recovered/Resolved]

NARRATIVE: CASE EVENT DATE: 20240119
